FAERS Safety Report 5368286-7 (Version None)
Quarter: 2007Q2

REPORT INFORMATION
  Report Type: 
  Country: None (occurrence: None)
  Receive Date: 20070619
  Receipt Date: 20070604
  Transmission Date: 20071010
  Serious: Yes (Hospitalization)
  Sender: FDA-Public Use
  Company Number: 100#08#2007-02057

PATIENT
  Age: 47 Year
  Sex: Female

DRUGS (3)
  1. METHYLPREDNISOLONE [Suspect]
     Indication: LETHARGY
     Dosage: 32 MG, ORAL
     Route: 048
  2. METHYLPREDNISOLONE [Suspect]
     Indication: MUSCULAR WEAKNESS
     Dosage: 32 MG, ORAL
     Route: 048
  3. TOPIRAMATE [Concomitant]

REACTIONS (4)
  - CONVULSION [None]
  - HEPATOTOXICITY [None]
  - MIXED HEPATOCELLULAR-CHOLESTATIC INJURY [None]
  - SELF-MEDICATION [None]
